FAERS Safety Report 5692511-6 (Version None)
Quarter: 2008Q2

REPORT INFORMATION
  Report Type: 
  Country: None (occurrence: None)
  Receive Date: 20080328
  Receipt Date: 20071213
  Transmission Date: 20081010
  Serious: No
  Sender: FDA-Public Use
  Company Number: US-WYE-H01728407

PATIENT
  Sex: Male

DRUGS (1)
  1. TORISEL [Suspect]
     Indication: RENAL CELL CARCINOMA
     Dosage: 25 MG - INTRAVENOUS
     Route: 042
     Dates: start: 20071213

REACTIONS (3)
  - DYSGEUSIA [None]
  - FLUSHING [None]
  - HYPERSENSITIVITY [None]
